FAERS Safety Report 24452788 (Version 1)
Quarter: 2024Q4

REPORT INFORMATION
  Report Type: Spontaneous
  Country: US (occurrence: US)
  Receive Date: 20241017
  Receipt Date: 20241017
  Transmission Date: 20250114
  Serious: No
  Sender: SUNOVION
  Company Number: US-SMPA-202403-URV-000437AA

PATIENT
  Sex: Female

DRUGS (1)
  1. GEMTESA [Suspect]
     Active Substance: VIBEGRON
     Indication: Bladder irritation
     Dosage: UNK
     Route: 065

REACTIONS (2)
  - Bladder disorder [Unknown]
  - Urinary tract infection [Unknown]
